FAERS Safety Report 21692751 (Version 1)
Quarter: 2022Q4

REPORT INFORMATION
  Report Type: Other
  Country: US (occurrence: None)
  Receive Date: 20221207
  Receipt Date: 20221207
  Transmission Date: 20230112
  Serious: Yes (Other)
  Sender: FDA-Public Use
  Company Number: US-ROCHE-3181561

PATIENT
  Sex: Female

DRUGS (9)
  1. CELLCEPT [Suspect]
     Active Substance: MYCOPHENOLATE MOFETIL
     Indication: Organising pneumonia
     Dosage: 500MG 2 TABLETS BID, (1000 MG )
     Route: 048
  2. CELLCEPT [Suspect]
     Active Substance: MYCOPHENOLATE MOFETIL
     Indication: Pulmonary fibrosis
  3. AUGMENTIN [Concomitant]
     Active Substance: AMOXICILLIN\CLAVULANATE POTASSIUM
  4. CODEINE [Concomitant]
     Active Substance: CODEINE
  5. CRESTOR [Concomitant]
     Active Substance: ROSUVASTATIN CALCIUM
  6. LEVAQUIN [Concomitant]
     Active Substance: LEVOFLOXACIN
  7. TAXOL [Concomitant]
     Active Substance: PACLITAXEL
  8. TRILIPIX [Concomitant]
     Active Substance: FENOFIBRIC ACID
  9. VANCOMYCIN [Concomitant]
     Active Substance: VANCOMYCIN

REACTIONS (2)
  - Off label use [Unknown]
  - White blood cell count increased [Unknown]
